FAERS Safety Report 15076500 (Version 3)
Quarter: 2019Q1

REPORT INFORMATION
  Report Type: Report from Study
  Country: US (occurrence: US)
  Receive Date: 20180627
  Receipt Date: 20190108
  Transmission Date: 20190417
  Serious: Yes (Other)
  Sender: FDA-Public Use
  Company Number: US-JNJFOC-20180400161

PATIENT
  Age: 65 Year
  Sex: Male
  Weight: 119 kg

DRUGS (65)
  1. IMBRUVICA [Suspect]
     Active Substance: IBRUTINIB
     Indication: CHRONIC LYMPHOCYTIC LEUKAEMIA
     Route: 048
     Dates: start: 201802, end: 201805
  2. FUROSEMIDE. [Concomitant]
     Active Substance: FUROSEMIDE
     Dosage: 20 MG, AS DIRECTED
     Route: 048
     Dates: start: 20180510
  3. FUROSEMIDE. [Concomitant]
     Active Substance: FUROSEMIDE
     Dosage: 20 MG, AS DIRECTED
     Route: 048
     Dates: start: 20180524
  4. FUROSEMIDE. [Concomitant]
     Active Substance: FUROSEMIDE
     Dosage: 20 MG, AS DIRECTED
     Route: 048
     Dates: start: 20180531
  5. LIPITOR [Concomitant]
     Active Substance: ATORVASTATIN CALCIUM
     Route: 048
     Dates: start: 20180531
  6. PERCOCET [Concomitant]
     Active Substance: ACETAMINOPHEN\OXYCODONE HYDROCHLORIDE
     Indication: PAIN
     Dosage: 1 TABLET Q4-6H PRN
     Route: 048
     Dates: start: 20180524
  7. LISINOPRIL. [Concomitant]
     Active Substance: LISINOPRIL
     Route: 048
     Dates: start: 20180510
  8. LISINOPRIL. [Concomitant]
     Active Substance: LISINOPRIL
     Route: 048
     Dates: start: 20180531
  9. FENTANYL. [Concomitant]
     Active Substance: FENTANYL
     Dosage: 1 PATCH TOPICAL Q72H
     Route: 062
     Dates: start: 20180524
  10. FENTANYL. [Concomitant]
     Active Substance: FENTANYL
     Dosage: 1 PATCH TOPICAL Q72H
     Route: 062
     Dates: start: 20180607
  11. XARELTO [Suspect]
     Active Substance: RIVAROXABAN
     Indication: ATRIAL FIBRILLATION
     Route: 048
     Dates: start: 2008
  12. XARELTO [Suspect]
     Active Substance: RIVAROXABAN
     Indication: ATRIAL FIBRILLATION
     Route: 048
     Dates: start: 20180524
  13. OXYBUTYNIN CHLORIDE. [Concomitant]
     Active Substance: OXYBUTYNIN CHLORIDE
     Route: 048
     Dates: start: 20180517
  14. OXYBUTYNIN CHLORIDE. [Concomitant]
     Active Substance: OXYBUTYNIN CHLORIDE
     Route: 048
     Dates: start: 20180607
  15. FUROSEMIDE. [Concomitant]
     Active Substance: FUROSEMIDE
     Dosage: 20 MG, AS DIRECTED
     Route: 048
     Dates: start: 20180607
  16. CHLORAMBUCIL [Concomitant]
     Active Substance: CHLORAMBUCIL
     Indication: LEUKAEMIA
     Dosage: TAKE 8 TABLETS DAY 1 AND DAY 15
     Route: 048
     Dates: start: 20180503
  17. IMBRUVICA [Suspect]
     Active Substance: IBRUTINIB
     Indication: CHRONIC LYMPHOCYTIC LEUKAEMIA
     Route: 048
     Dates: start: 20180518
  18. XARELTO [Suspect]
     Active Substance: RIVAROXABAN
     Indication: ATRIAL FIBRILLATION
     Route: 048
     Dates: start: 20180607
  19. VALACYCLOVIR HCL [Concomitant]
     Active Substance: VALACYCLOVIR HYDROCHLORIDE
     Route: 048
     Dates: start: 20180510
  20. VALACYCLOVIR HCL [Concomitant]
     Active Substance: VALACYCLOVIR HYDROCHLORIDE
     Route: 048
     Dates: start: 20180524
  21. VALACYCLOVIR HCL [Concomitant]
     Active Substance: VALACYCLOVIR HYDROCHLORIDE
     Route: 048
     Dates: start: 20180607
  22. OXYBUTYNIN CHLORIDE. [Concomitant]
     Active Substance: OXYBUTYNIN CHLORIDE
     Route: 048
     Dates: start: 20180503
  23. OXYBUTYNIN CHLORIDE. [Concomitant]
     Active Substance: OXYBUTYNIN CHLORIDE
     Route: 048
     Dates: start: 20180524
  24. LISINOPRIL. [Concomitant]
     Active Substance: LISINOPRIL
     Route: 048
     Dates: start: 20180517
  25. LISINOPRIL. [Concomitant]
     Active Substance: LISINOPRIL
     Route: 048
     Dates: start: 20180524
  26. LISINOPRIL. [Concomitant]
     Active Substance: LISINOPRIL
     Route: 048
     Dates: start: 20180607
  27. FENTANYL. [Concomitant]
     Active Substance: FENTANYL
     Dosage: 1 PATCH TOPICAL Q72H
     Route: 062
     Dates: start: 20180503
  28. IMBRUVICA [Suspect]
     Active Substance: IBRUTINIB
     Indication: CHRONIC LYMPHOCYTIC LEUKAEMIA
     Dosage: 420 MG, QD
     Route: 048
  29. VALACYCLOVIR HCL [Concomitant]
     Active Substance: VALACYCLOVIR HYDROCHLORIDE
     Route: 048
     Dates: start: 20180517
  30. AMLODIPINE BESYLATE. [Concomitant]
     Active Substance: AMLODIPINE BESYLATE
     Dosage: TAKING HALF A PILL NOW
     Route: 048
     Dates: start: 20180503
  31. AMLODIPINE BESYLATE. [Concomitant]
     Active Substance: AMLODIPINE BESYLATE
     Route: 048
     Dates: start: 20180607
  32. FUROSEMIDE. [Concomitant]
     Active Substance: FUROSEMIDE
     Dosage: 20 MG, AS DIRECTED
     Route: 048
     Dates: start: 20180517
  33. CHLORAMBUCIL [Concomitant]
     Active Substance: CHLORAMBUCIL
     Indication: LEUKAEMIA
     Dosage: TAKE 8 TABLETS DAY 1 AND DAY 15
     Route: 048
     Dates: start: 20180510
  34. CHLORAMBUCIL [Concomitant]
     Active Substance: CHLORAMBUCIL
     Indication: LEUKAEMIA
     Dosage: TAKE 8 TABLETS DAY 1 AND DAY 15
     Route: 048
     Dates: start: 20180517
  35. LIPITOR [Concomitant]
     Active Substance: ATORVASTATIN CALCIUM
     Route: 048
     Dates: start: 20180517
  36. LIPITOR [Concomitant]
     Active Substance: ATORVASTATIN CALCIUM
     Route: 048
     Dates: start: 20180524
  37. FENTANYL. [Concomitant]
     Active Substance: FENTANYL
     Dosage: 1 PATCH TOPICAL Q72H
     Route: 062
     Dates: start: 20180531
  38. IMBRUVICA [Suspect]
     Active Substance: IBRUTINIB
     Indication: CHRONIC LYMPHOCYTIC LEUKAEMIA
     Route: 048
     Dates: start: 20180208, end: 20180504
  39. XARELTO [Suspect]
     Active Substance: RIVAROXABAN
     Indication: ATRIAL FIBRILLATION
     Route: 048
     Dates: start: 20180510
  40. XARELTO [Suspect]
     Active Substance: RIVAROXABAN
     Indication: ATRIAL FIBRILLATION
     Route: 048
     Dates: start: 20180531
  41. XARELTO [Suspect]
     Active Substance: RIVAROXABAN
     Indication: ATRIAL FIBRILLATION
     Route: 048
     Dates: start: 2018
  42. AMLODIPINE BESYLATE. [Concomitant]
     Active Substance: AMLODIPINE BESYLATE
     Dosage: TAKING HALF A PILL NOW
     Route: 048
     Dates: start: 20180524
  43. AMLODIPINE BESYLATE. [Concomitant]
     Active Substance: AMLODIPINE BESYLATE
     Dosage: TAKING HALF A PILL NOW
     Route: 048
     Dates: start: 20180531
  44. PERCOCET [Concomitant]
     Active Substance: ACETAMINOPHEN\OXYCODONE HYDROCHLORIDE
     Indication: PAIN
     Dosage: 1 TABLET Q4-6H PRN
     Route: 048
     Dates: start: 20180531
  45. LISINOPRIL. [Concomitant]
     Active Substance: LISINOPRIL
     Dosage: 20 MG, AS DIRECTED
     Route: 048
     Dates: start: 20180503
  46. FENTANYL. [Concomitant]
     Active Substance: FENTANYL
     Dosage: 1 PATCH TOPICAL Q72H
     Route: 062
     Dates: start: 20180517
  47. VALACYCLOVIR HCL [Concomitant]
     Active Substance: VALACYCLOVIR HYDROCHLORIDE
     Route: 048
     Dates: start: 20140721, end: 20180503
  48. AMLODIPINE BESYLATE. [Concomitant]
     Active Substance: AMLODIPINE BESYLATE
     Dosage: TAKING HALF A PILL NOW
     Route: 048
     Dates: start: 20180510
  49. CHLORAMBUCIL [Concomitant]
     Active Substance: CHLORAMBUCIL
     Indication: LEUKAEMIA
     Dosage: TAKE 8 TABLETS DAY 1 AND DAY 15
     Route: 048
     Dates: start: 20180607
  50. XARELTO [Suspect]
     Active Substance: RIVAROXABAN
     Indication: ATRIAL FIBRILLATION
     Route: 048
     Dates: start: 20180503
  51. XARELTO [Suspect]
     Active Substance: RIVAROXABAN
     Indication: ATRIAL FIBRILLATION
     Route: 048
     Dates: start: 20180517
  52. OXYBUTYNIN CHLORIDE. [Concomitant]
     Active Substance: OXYBUTYNIN CHLORIDE
     Route: 048
     Dates: start: 20180531
  53. FUROSEMIDE. [Concomitant]
     Active Substance: FUROSEMIDE
     Dosage: 20 MG, AS DIRECTED
     Route: 048
     Dates: start: 20180503
  54. CHLORAMBUCIL [Concomitant]
     Active Substance: CHLORAMBUCIL
     Indication: LEUKAEMIA
     Dosage: TAKE 8 TABLETS DAY 1 AND DAY 15
     Route: 048
     Dates: start: 20180531
  55. LIPITOR [Concomitant]
     Active Substance: ATORVASTATIN CALCIUM
     Route: 048
     Dates: start: 20180510
  56. LIPITOR [Concomitant]
     Active Substance: ATORVASTATIN CALCIUM
     Route: 048
     Dates: start: 20180607
  57. PERCOCET [Concomitant]
     Active Substance: ACETAMINOPHEN\OXYCODONE HYDROCHLORIDE
     Indication: PAIN
     Dosage: 1 TABLET Q4-6H PRN
     Route: 048
     Dates: start: 20180517
  58. PERCOCET [Concomitant]
     Active Substance: ACETAMINOPHEN\OXYCODONE HYDROCHLORIDE
     Indication: PAIN
     Dosage: 1 TABLET Q4-6H PRN
     Route: 048
     Dates: start: 20180607
  59. AMLODIPINE BESYLATE. [Concomitant]
     Active Substance: AMLODIPINE BESYLATE
     Dosage: TAKING HALF A PILL NOW
     Route: 048
     Dates: start: 20180517
  60. OXYBUTYNIN CHLORIDE. [Concomitant]
     Active Substance: OXYBUTYNIN CHLORIDE
     Route: 048
     Dates: start: 20180510
  61. CHLORAMBUCIL [Concomitant]
     Active Substance: CHLORAMBUCIL
     Indication: LEUKAEMIA
     Dosage: TAKE 8 TABLETS DAY 1 AND DAY 15
     Route: 048
     Dates: start: 20180524
  62. LIPITOR [Concomitant]
     Active Substance: ATORVASTATIN CALCIUM
     Route: 048
     Dates: start: 20180503
  63. PERCOCET [Concomitant]
     Active Substance: ACETAMINOPHEN\OXYCODONE HYDROCHLORIDE
     Indication: PAIN
     Dosage: 1 TABLET Q4-6H PRN
     Route: 048
     Dates: start: 20180503
  64. PERCOCET [Concomitant]
     Active Substance: ACETAMINOPHEN\OXYCODONE HYDROCHLORIDE
     Indication: PAIN
     Dosage: 1 TABLET Q4-6H PRN
     Route: 048
     Dates: start: 20180510
  65. FENTANYL. [Concomitant]
     Active Substance: FENTANYL
     Dosage: 1 PATCH TOPICAL Q72H
     Route: 062
     Dates: start: 20180510

REACTIONS (12)
  - Dry skin [Recovering/Resolving]
  - Oral herpes [Recovered/Resolved]
  - Blood potassium decreased [Unknown]
  - Joint swelling [Not Recovered/Not Resolved]
  - Epistaxis [Recovered/Resolved]
  - Skin fissures [Recovering/Resolving]
  - Abdominal distension [Not Recovered/Not Resolved]
  - Cystitis haemorrhagic [Unknown]
  - Hernia [Recovered/Resolved]
  - Blood glucose increased [Unknown]
  - Dyspnoea exertional [Not Recovered/Not Resolved]
  - Peripheral swelling [Recovering/Resolving]

NARRATIVE: CASE EVENT DATE: 20180410
